FAERS Safety Report 9009985 (Version 1)
Quarter: 2013Q1

REPORT INFORMATION
  Report Type: Spontaneous
  Country: US (occurrence: US)
  Receive Date: 20130110
  Receipt Date: 20130110
  Transmission Date: 20140127
  Serious: No
  Sender: FDA-Public Use
  Company Number: US-BRISTOL-MYERS SQUIBB COMPANY-17138025

PATIENT
  Age: 39 Year
  Sex: Female

DRUGS (1)
  1. NULOJIX [Suspect]
     Indication: RENAL TRANSPLANT
     Dates: start: 20120604

REACTIONS (1)
  - Alopecia [Unknown]
